FAERS Safety Report 9772066 (Version 1)
Quarter: 2013Q4

REPORT INFORMATION
  Report Type: Spontaneous
  Country: US (occurrence: None)
  Receive Date: 20131218
  Receipt Date: 20131218
  Transmission Date: 20140711
  Serious: Yes (Other)
  Sender: FDA-Public Use
  Company Number: None

PATIENT
  Age: 87 Year
  Sex: Female
  Weight: 68.04 kg

DRUGS (1)
  1. CRESTOR [Suspect]
     Indication: MYOCARDIAL INFARCTION
     Dosage: 1 PILL, ONCE DAILY, TAKEN BY MOUTH
     Dates: start: 20131112, end: 20131215

REACTIONS (2)
  - Myalgia [None]
  - Muscular weakness [None]
